FAERS Safety Report 13531284 (Version 9)
Quarter: 2019Q1

REPORT INFORMATION
  Report Type: Spontaneous
  Country: US (occurrence: US)
  Receive Date: 20170510
  Receipt Date: 20190128
  Transmission Date: 20190417
  Serious: No
  Sender: FDA-Public Use
  Company Number: US-PFIZER INC-2017151554

PATIENT
  Age: 66 Year
  Sex: Male
  Weight: 122.4 kg

DRUGS (9)
  1. POTASSIUM CHLORIDE. [Concomitant]
     Active Substance: POTASSIUM CHLORIDE
     Dosage: UNK
  2. IBRANCE [Suspect]
     Active Substance: PALBOCICLIB
     Indication: LIPOSARCOMA
     Dosage: 125 MG, CYCLIC (ONCE A DAY FOR 21 DAYS ON THEN 7 DAYS OFF/28 DAYS CYCLE)
     Route: 048
     Dates: start: 20170406
  3. TRAZODONE HYDROCHLORIDE. [Concomitant]
     Active Substance: TRAZODONE HYDROCHLORIDE
     Dosage: UNK
  4. LORAZEPAM. [Concomitant]
     Active Substance: LORAZEPAM
     Indication: ANXIETY
     Dosage: 1 MG, DAILY
  5. DIPHEN [DIPHENHYDRAMINE HYDROCHLORIDE] [Concomitant]
     Indication: DIARRHOEA
     Dosage: 2.5 MG, AS NEEDED
  6. JOINT TISSUE SUPPORT [Concomitant]
     Dosage: UNK
  7. NAPROXEN. [Concomitant]
     Active Substance: NAPROXEN
     Dosage: UNK
  8. FUROSEMIDE. [Concomitant]
     Active Substance: FUROSEMIDE
     Dosage: UNK
  9. AMBIEN [Concomitant]
     Active Substance: ZOLPIDEM TARTRATE
     Indication: INSOMNIA
     Dosage: 10 MG, 1X/DAY (BEDTIME)

REACTIONS (10)
  - Urticaria [Unknown]
  - Diarrhoea [Recovered/Resolved]
  - Amnesia [Not Recovered/Not Resolved]
  - Fatigue [Not Recovered/Not Resolved]
  - Fluid retention [Unknown]
  - Product use in unapproved indication [Unknown]
  - Pruritus generalised [Unknown]
  - Depression [Recovered/Resolved]
  - Insomnia [Recovering/Resolving]
  - Frequent bowel movements [Unknown]

NARRATIVE: CASE EVENT DATE: 2017
